FAERS Safety Report 5002577-4 (Version None)
Quarter: 2006Q2

REPORT INFORMATION
  Report Type: 
  Country: None (occurrence: None)
  Receive Date: 20060515
  Receipt Date: 20051004
  Transmission Date: 20061013
  Serious: Yes (Other)
  Sender: FDA-Public Use
  Company Number: US-MERCK-0510USA03982

PATIENT
  Age: 69 Year
  Sex: Female
  Weight: 90 kg

DRUGS (25)
  1. VIOXX [Suspect]
     Indication: OSTEOARTHRITIS
     Route: 048
     Dates: start: 19990608, end: 20040719
  2. VIOXX [Suspect]
     Route: 048
     Dates: start: 19990608, end: 20040719
  3. VIOXX [Suspect]
     Route: 048
     Dates: start: 19990608, end: 20040719
  4. VIOXX [Suspect]
     Route: 048
     Dates: start: 19990608, end: 20040719
  5. VIOXX [Suspect]
     Route: 048
     Dates: start: 19990608, end: 20040719
  6. VIOXX [Suspect]
     Route: 048
     Dates: start: 19990608, end: 20040719
  7. VIOXX [Suspect]
     Indication: BACK PAIN
     Route: 048
     Dates: start: 19990608, end: 20040719
  8. VIOXX [Suspect]
     Route: 048
     Dates: start: 19990608, end: 20040719
  9. VIOXX [Suspect]
     Route: 048
     Dates: start: 19990608, end: 20040719
  10. VIOXX [Suspect]
     Route: 048
     Dates: start: 19990608, end: 20040719
  11. VIOXX [Suspect]
     Route: 048
     Dates: start: 19990608, end: 20040719
  12. VIOXX [Suspect]
     Route: 048
     Dates: start: 19990608, end: 20040719
  13. GLUCOTROL [Concomitant]
     Route: 065
     Dates: start: 20020301
  14. LIPITOR [Concomitant]
     Route: 065
     Dates: start: 20040201, end: 20040801
  15. METFORMIN [Concomitant]
     Route: 065
     Dates: start: 20021101
  16. ASPIRIN [Concomitant]
     Route: 065
     Dates: start: 20030819
  17. MOBIC [Concomitant]
     Indication: ANALGESIC EFFECT
     Route: 065
     Dates: start: 20000919, end: 20001001
  18. TYLENOL EXTRA STRENGTH [Concomitant]
     Route: 065
     Dates: start: 19990608
  19. ULTRACET [Concomitant]
     Indication: ANALGESIC EFFECT
     Route: 065
     Dates: start: 20020218, end: 20020301
  20. CELEBREX [Concomitant]
     Route: 065
  21. ACCUPRIL [Concomitant]
     Indication: HYPERTENSION
     Route: 065
     Dates: start: 20030627, end: 20041201
  22. GLIPIZIDE [Concomitant]
     Route: 065
  23. [THERAPY UNSPECIFIED] [Concomitant]
     Route: 065
     Dates: start: 20030627, end: 20041201
  24. TYLENOL (CAPLET) [Concomitant]
     Indication: ANALGESIC EFFECT
     Route: 065
     Dates: start: 19990512, end: 19990601
  25. ACETAMINOPHEN AND OXYCODONE HYDROCHLORIDE [Concomitant]
     Indication: ANALGESIC EFFECT
     Route: 065
     Dates: start: 20020618, end: 20020620

REACTIONS (8)
  - BACTERIAL INFECTION [None]
  - CEREBROVASCULAR ACCIDENT [None]
  - DIABETIC NEUROPATHY [None]
  - HYPERTENSION [None]
  - INFECTION [None]
  - PAIN [None]
  - PRESCRIBED OVERDOSE [None]
  - TRANSIENT ISCHAEMIC ATTACK [None]
